FAERS Safety Report 4456113-1 (Version None)
Quarter: 2004Q3

REPORT INFORMATION
  Report Type: 
  Country: None (occurrence: None)
  Receive Date: 20040920
  Receipt Date: 20040907
  Transmission Date: 20050211
  Serious: Yes (Other)
  Sender: FDA-Public Use
  Company Number: 2004060799

PATIENT
  Sex: 0

DRUGS (1)
  1. VFEND [Suspect]
     Indication: ASPERGILLOSIS
     Dates: start: 20040101

REACTIONS (1)
  - NO ADVERSE DRUG EFFECT [None]
